FAERS Safety Report 5066575-7 (Version None)
Quarter: 2006Q3

REPORT INFORMATION
  Report Type: 
  Country: None (occurrence: None)
  Receive Date: 20060801
  Receipt Date: 20060727
  Transmission Date: 20061208
  Serious: Yes (Other)
  Sender: FDA-Public Use
  Company Number: JP-BRACCO-BRO-010361

PATIENT
  Age: 60 Year
  Sex: Female

DRUGS (1)
  1. IOPAMIRON [Suspect]
     Route: 050

REACTIONS (1)
  - ERYTHEMA MULTIFORME [None]
